FAERS Safety Report 8419341-6 (Version None)
Quarter: 2012Q2

REPORT INFORMATION
  Report Type: 
  Country: None (occurrence: None)
  Receive Date: 20120601
  Receipt Date: 20120517
  Transmission Date: 20120825
  Serious: Yes (Other)
  Sender: FDA-Public Use
  Company Number: 2012P1028708

PATIENT
  Age: 64 Year
  Sex: Female
  Weight: 106.1417 kg

DRUGS (2)
  1. UNPSECIFIED MEDICATIONS [Concomitant]
  2. FENTANYL CITRATE [Suspect]
     Indication: PAIN
     Dosage: Q72H
     Dates: start: 20110101

REACTIONS (6)
  - INADEQUATE ANALGESIA [None]
  - DYSPNOEA [None]
  - CONDITION AGGRAVATED [None]
  - PAIN [None]
  - CHRONIC OBSTRUCTIVE PULMONARY DISEASE [None]
  - PRODUCT ADHESION ISSUE [None]
